FAERS Safety Report 6858330-X (Version None)
Quarter: 2010Q3

REPORT INFORMATION
  Report Type: 
  Country: None (occurrence: None)
  Receive Date: 20100719
  Receipt Date: 20080415
  Transmission Date: 20110219
  Serious: No
  Sender: FDA-Public Use
  Company Number: US-PFIZER INC-2008011997

PATIENT
  Sex: Male
  Weight: 79.5 kg

DRUGS (5)
  1. CHANTIX [Suspect]
     Indication: SMOKING CESSATION THERAPY
     Route: 048
     Dates: start: 20080118
  2. PRILOSEC [Concomitant]
  3. REGLAN [Concomitant]
     Indication: HIATUS HERNIA
  4. CLARITIN-D [Concomitant]
  5. MULTI-VITAMINS [Concomitant]

REACTIONS (2)
  - BLOOD POTASSIUM INCREASED [None]
  - INSOMNIA [None]
